FAERS Safety Report 17081971 (Version 2)
Quarter: 2019Q4

REPORT INFORMATION
  Report Type: Report from Study
  Country: AT (occurrence: AT)
  Receive Date: 20191127
  Receipt Date: 20191129
  Transmission Date: 20200122
  Serious: Yes (Death, Hospitalization, Other)
  Sender: FDA-Public Use
  Company Number: AT-PFIZER INC-2017121927

PATIENT
  Age: 31 Year
  Sex: Male
  Weight: 100 kg

DRUGS (4)
  1. TRIMETHOPRIM. [Concomitant]
     Active Substance: TRIMETHOPRIM
     Indication: PROPHYLAXIS
     Dosage: 800 MG, CYCLIC (3X/WEEK)
     Route: 048
     Dates: start: 201701, end: 201706
  2. INOTUZUMAB OZOGAMICIN [Suspect]
     Active Substance: INOTUZUMAB OZOGAMICIN
     Indication: ACUTE LYMPHOCYTIC LEUKAEMIA REFRACTORY
     Dosage: 0.5 MG/M2
     Route: 042
     Dates: start: 20170118, end: 2017
  3. VALACICLOVIR [Concomitant]
     Active Substance: VALACYCLOVIR HYDROCHLORIDE
     Indication: PROPHYLAXIS
     Dosage: 500 MG, 2X/DAY
     Route: 048
     Dates: start: 20170107, end: 20170615
  4. INOTUZUMAB OZOGAMICIN [Suspect]
     Active Substance: INOTUZUMAB OZOGAMICIN
     Dosage: 0.5 MG/M2
     Route: 042
     Dates: start: 201705, end: 20170516

REACTIONS (11)
  - Chronic kidney disease [Unknown]
  - Encephalopathy [Unknown]
  - Renal failure [Fatal]
  - Thrombotic microangiopathy [Unknown]
  - Viral haemorrhagic cystitis [Recovered/Resolved with Sequelae]
  - Multiple organ dysfunction syndrome [Fatal]
  - Thrombocytopenia [Recovering/Resolving]
  - Venoocclusive liver disease [Recovering/Resolving]
  - Haematuria [Unknown]
  - Blood loss anaemia [Unknown]
  - Bronchopulmonary aspergillosis [Unknown]

NARRATIVE: CASE EVENT DATE: 2017
